FAERS Safety Report 8791535 (Version 1)
Quarter: 2012Q4

REPORT INFORMATION
  Report Type: Spontaneous
  Country: JP (occurrence: None)
  Receive Date: 20120913
  Receipt Date: 20120913
  Transmission Date: 20130627
  Serious: Yes (Hospitalization, Other)
  Sender: FDA-Public Use
  Company Number: IMP_05979_2012

PATIENT
  Sex: Female

DRUGS (1)
  1. RILUZOLE [Suspect]
     Indication: AMYOTROPHIC LATERAL SCLEROSIS

REACTIONS (8)
  - Cough [None]
  - Computerised tomogram thorax abnormal [None]
  - Traumatic lung injury [None]
  - Lung consolidation [None]
  - Pulmonary fibrosis [None]
  - Interstitial lung disease [None]
  - Lymphocyte stimulation test positive [None]
  - Multifocal micronodular pneumocyte hyperplasia [None]
